FAERS Safety Report 8031463-0 (Version None)
Quarter: 2011Q4

REPORT INFORMATION
  Report Type: 
  Country: None (occurrence: None)
  Receive Date: 20111202
  Receipt Date: 20090826
  Transmission Date: 20120403
  Serious: Yes (Hospitalization, Other)
  Sender: FDA-Public Use
  Company Number: 2009-194843-NL

PATIENT
  Age: 31 Year
  Sex: Female
  Weight: 64.8644 kg

DRUGS (23)
  1. ZYRTEC [Concomitant]
  2. PROVENTIL-HFA [Concomitant]
  3. AZITHROMYCIN [Concomitant]
  4. ESTRADERM [Concomitant]
  5. PRILOSEC [Concomitant]
  6. FLUTICASONE PROPIONATE [Concomitant]
  7. AFRIN [Concomitant]
  8. ESTROGENIC SUBSTANCE [Suspect]
     Indication: ACNE
     Dates: start: 20080101, end: 20080101
  9. FLAGIL [Concomitant]
  10. PAROXETINE [Concomitant]
  11. NUVARING [Suspect]
     Indication: MENSTRUATION IRREGULAR
     Dosage: 1 DF
     Dates: start: 20080301, end: 20081215
  12. FLONASE [Concomitant]
  13. AZITHROMYCIN [Concomitant]
  14. AVELOX [Concomitant]
  15. METRONIDAZOLE [Concomitant]
  16. TYLENOL SINUS [Concomitant]
  17. CLARITIN [Concomitant]
  18. METHYLPREDNISOLONE ACETATE [Concomitant]
  19. HYDROCODONE BITARTRATE AND ACETAMINOPHEN [Concomitant]
  20. TYLENOL COLD [Concomitant]
  21. TRANSDERM SCOP [Concomitant]
  22. ALBUTEROL INHALER [Concomitant]
  23. DORYX [Concomitant]

REACTIONS (3)
  - METRORRHAGIA [None]
  - PULMONARY EMBOLISM [None]
  - DEEP VEIN THROMBOSIS [None]
